FAERS Safety Report 8185926-8 (Version None)
Quarter: 2012Q1

REPORT INFORMATION
  Report Type: 
  Country: None (occurrence: None)
  Receive Date: 20120305
  Receipt Date: 20120224
  Transmission Date: 20120608
  Serious: Yes (Other)
  Sender: FDA-Public Use
  Company Number: US-ASTRAZENECA-2011SE21255

PATIENT
  Age: 52 Year
  Sex: Female

DRUGS (3)
  1. PULMICORT FLEXHALER [Suspect]
     Dosage: 180 MG DAILY
     Route: 055
  2. SYMBICORT [Suspect]
     Route: 055
  3. NEXIUM [Suspect]
     Route: 048

REACTIONS (8)
  - EAR INFECTION [None]
  - IMMUNE SYSTEM DISORDER [None]
  - GRANULOMA ANNULARE [None]
  - RESPIRATORY TRACT INFECTION [None]
  - DRUG INEFFECTIVE [None]
  - NEOPLASM MALIGNANT [None]
  - MALAISE [None]
  - SINUSITIS [None]
